FAERS Safety Report 8129052-2 (Version None)
Quarter: 2012Q1

REPORT INFORMATION
  Report Type: 
  Country: None (occurrence: None)
  Receive Date: 20120210
  Receipt Date: 20110824
  Transmission Date: 20120608
  Serious: Yes (Hospitalization)
  Sender: FDA-Public Use
  Company Number: US-BRISTOL-MYERS SQUIBB COMPANY-15999220

PATIENT
  Age: 82 Year
  Sex: Female

DRUGS (2)
  1. ENBREL [Concomitant]
     Indication: RHEUMATOID ARTHRITIS
     Dosage: SOLN FOR INJ IN PRE-FILLED SYRINGE,RESUMED AND CONTINUED
     Route: 058
     Dates: start: 20091214
  2. ORENCIA [Suspect]
     Indication: RHEUMATOID ARTHRITIS

REACTIONS (1)
  - RHEUMATOID ARTHRITIS [None]
